FAERS Safety Report 11163722 (Version 1)
Quarter: 2015Q2

REPORT INFORMATION
  Report Type: Spontaneous
  Country: US (occurrence: US)
  Receive Date: 20150604
  Receipt Date: 20150604
  Transmission Date: 20150821
  Serious: No
  Sender: FDA-Public Use
  Company Number: US-SUN PHARMACEUTICAL INDUSTRIES LTD-2014SUN01302

PATIENT

DRUGS (4)
  1. OXYCODONE HCL C-II TABS 5MG [Suspect]
     Active Substance: OXYCODONE HYDROCHLORIDE
     Indication: BACK INJURY
  2. OXYCODONE HCL C-II TABS 5MG [Suspect]
     Active Substance: OXYCODONE HYDROCHLORIDE
     Indication: OROPHARYNGEAL PAIN
     Dosage: 10 MG EVERY 4-6 HOURS AS NEEDED, PRN
     Route: 065
     Dates: start: 20140401
  3. CLANTIN [Concomitant]
  4. XANAX [Concomitant]
     Active Substance: ALPRAZOLAM

REACTIONS (1)
  - Drug ineffective [Unknown]
